FAERS Safety Report 15340306 (Version 2)
Quarter: 2018Q3

REPORT INFORMATION
  Report Type: Spontaneous
  Country: SA (occurrence: SA)
  Receive Date: 20180831
  Receipt Date: 20180912
  Transmission Date: 20181010
  Serious: Yes (Life-Threatening, Hospitalization, Other)
  Sender: FDA-Public Use
  Company Number: SA-BRISTOL-MYERS SQUIBB COMPANY-BMS-2018-080273

PATIENT
  Age: 23 Year
  Sex: Female

DRUGS (1)
  1. METFORMIN HYDROCHLORIDE. [Suspect]
     Active Substance: METFORMIN HYDROCHLORIDE
     Indication: WEIGHT DECREASED
     Dosage: 500 MG, UNK
     Route: 048

REACTIONS (7)
  - Intentional overdose [Recovering/Resolving]
  - Off label use [Unknown]
  - Toxicity to various agents [Recovering/Resolving]
  - Hypoglycaemia [Recovering/Resolving]
  - Lactic acidosis [Recovering/Resolving]
  - Suicide attempt [Recovered/Resolved]
  - Hypotension [Recovering/Resolving]
